FAERS Safety Report 25348551 (Version 1)
Quarter: 2025Q2

REPORT INFORMATION
  Report Type: Spontaneous
  Country: DE (occurrence: DE)
  Receive Date: 20250522
  Receipt Date: 20250522
  Transmission Date: 20250716
  Serious: Yes (Other)
  Sender: MYLAN
  Company Number: DE-JNJFOC-20250502459

PATIENT
  Sex: Female

DRUGS (12)
  1. SILDENAFIL [Suspect]
     Active Substance: SILDENAFIL
     Indication: Product used for unknown indication
  2. SILDENAFIL [Suspect]
     Active Substance: SILDENAFIL
     Route: 065
  3. SILDENAFIL [Suspect]
     Active Substance: SILDENAFIL
     Route: 065
  4. SILDENAFIL [Suspect]
     Active Substance: SILDENAFIL
  5. OPSUMIT [Suspect]
     Active Substance: MACITENTAN
     Indication: Product used for unknown indication
  6. OPSUMIT [Suspect]
     Active Substance: MACITENTAN
     Route: 048
  7. OPSUMIT [Suspect]
     Active Substance: MACITENTAN
     Route: 048
  8. OPSUMIT [Suspect]
     Active Substance: MACITENTAN
  9. TREPROSTINIL [Suspect]
     Active Substance: TREPROSTINIL
     Indication: Product used for unknown indication
  10. TREPROSTINIL [Suspect]
     Active Substance: TREPROSTINIL
     Route: 065
  11. TREPROSTINIL [Suspect]
     Active Substance: TREPROSTINIL
     Route: 065
  12. TREPROSTINIL [Suspect]
     Active Substance: TREPROSTINIL

REACTIONS (2)
  - Abortion [Recovered/Resolved]
  - Maternal exposure during pregnancy [Recovered/Resolved]
